FAERS Safety Report 6712601-6 (Version None)
Quarter: 2010Q2

REPORT INFORMATION
  Report Type: 
  Country: None (occurrence: None)
  Receive Date: 20100505
  Receipt Date: 20100505
  Transmission Date: 20101027
  Serious: No
  Sender: FDA-Public Use
  Company Number: None

PATIENT
  Sex: Female
  Weight: 66.6788 kg

DRUGS (2)
  1. BUPROPION HCL [Suspect]
     Indication: DEPRESSION
     Dosage: 100 MG 1 DAILY ORAL
     Route: 048
     Dates: start: 20100310, end: 20100315
  2. BUPROPION HCL [Suspect]
     Indication: ELEVATED MOOD
     Dosage: 100 MG 1 DAILY ORAL
     Route: 048
     Dates: start: 20100310, end: 20100315

REACTIONS (6)
  - CONSTIPATION [None]
  - GINGIVAL PAIN [None]
  - LIP PAIN [None]
  - LIP SWELLING [None]
  - POLLAKIURIA [None]
  - SWOLLEN TONGUE [None]
